FAERS Safety Report 6206801-1 (Version None)
Quarter: 2009Q2

REPORT INFORMATION
  Report Type: 
  Country: None (occurrence: None)
  Receive Date: 20090528
  Receipt Date: 20090519
  Transmission Date: 20091009
  Serious: Yes (Hospitalization)
  Sender: FDA-Public Use
  Company Number: JP-JNJFOC-20090503930

PATIENT
  Sex: Female
  Weight: 67.8 kg

DRUGS (33)
  1. FENTANYL-100 [Suspect]
     Indication: OSTEOARTHRITIS
     Dosage: ONCE DAILY
     Route: 062
  2. FENTANYL-100 [Suspect]
     Route: 062
  3. FENTANYL-100 [Suspect]
     Dosage: ONCE DAILY
     Route: 062
  4. EKSALB [Concomitant]
     Indication: DERMATITIS
     Route: 061
  5. CELECOXIB [Concomitant]
     Indication: SPINAL OSTEOARTHRITIS
     Route: 048
  6. ISALON [Concomitant]
     Indication: GASTRITIS
     Route: 048
  7. ADEFURONIC [Concomitant]
     Indication: SPINAL OSTEOARTHRITIS
     Route: 054
  8. MOHRUS [Concomitant]
     Route: 062
  9. MOHRUS [Concomitant]
     Indication: SPINAL OSTEOARTHRITIS
     Dosage: 1 DF X 1PER 1 DAY
     Route: 062
  10. MAGNESIUM OXIDE [Concomitant]
     Indication: CONSTIPATION
     Route: 048
  11. PANTETHINE [Concomitant]
     Indication: CONSTIPATION
     Route: 048
  12. PURSENNID [Concomitant]
     Indication: CONSTIPATION
     Route: 048
  13. PRORENAL [Concomitant]
     Indication: LUMBAR SPINAL STENOSIS
     Route: 048
  14. SODIUM HYALURONATE [Concomitant]
     Indication: OSTEOARTHRITIS
     Route: 014
  15. ELCITONIN [Concomitant]
     Indication: OSTEOPOROSIS
     Route: 030
  16. WINTERMIN [Concomitant]
     Indication: DYSTHYMIC DISORDER
     Route: 048
  17. ALPRAZOLAM [Concomitant]
     Indication: DYSTHYMIC DISORDER
     Route: 048
  18. TOLEDOMIN [Concomitant]
     Indication: DYSTHYMIC DISORDER
     Route: 048
  19. DEPAKENE [Concomitant]
     Indication: INSOMNIA
     Route: 048
  20. PARULEON [Concomitant]
     Indication: INSOMNIA
     Route: 048
  21. MYSLEE [Concomitant]
     Indication: INSOMNIA
     Route: 048
  22. VEGETAMIN-B [Concomitant]
     Indication: INSOMNIA
     Route: 048
  23. GARASONE [Concomitant]
     Indication: DERMATITIS
     Route: 061
  24. NIFEDIPINE [Concomitant]
     Indication: HYPERTENSION
     Route: 048
  25. HERBESSER [Concomitant]
     Indication: HYPERTENSION
     Route: 048
  26. PARIET [Concomitant]
     Indication: REFLUX OESOPHAGITIS
     Route: 048
  27. ISOSORBIDE DINITRATE [Concomitant]
     Indication: ANGINA PECTORIS
     Route: 062
  28. TAIMEC [Concomitant]
     Indication: GASTRITIS
     Route: 048
  29. BIO-THREE [Concomitant]
     Indication: CONSTIPATION
     Route: 048
  30. BERIZYM [Concomitant]
     Indication: GASTRITIS
     Route: 048
  31. SODIUM GUALENATE [Concomitant]
     Indication: STOMATITIS
     Route: 002
  32. TERNELIN [Concomitant]
     Indication: SPINAL OSTEOARTHRITIS
     Route: 048
  33. BAKUMONDOUTO [Concomitant]
     Indication: REFLUX OESOPHAGITIS
     Route: 048

REACTIONS (1)
  - PNEUMONIA [None]
